FAERS Safety Report 9424463 (Version 1)
Quarter: 2013Q3

REPORT INFORMATION
  Report Type: Spontaneous
  Country: US (occurrence: US)
  Receive Date: 20130729
  Receipt Date: 20130729
  Transmission Date: 20140515
  Serious: Yes (Hospitalization)
  Sender: FDA-Public Use
  Company Number: US-COVIDIEN/TYCO HEALTHCARE/MALLINCKRODT-T201303385

PATIENT
  Age: 33 Year
  Sex: Male

DRUGS (2)
  1. GABLOFEN [Suspect]
     Indication: MUSCLE SPASTICITY
     Dosage: 100MCG/DAY
     Route: 037
  2. GABLOFEN [Suspect]
     Dosage: 150 MCG/DAY
     Route: 037

REACTIONS (4)
  - Cerebrospinal fluid leakage [Unknown]
  - Implant site swelling [Unknown]
  - Drug ineffective [Unknown]
  - Medical device complication [Recovered/Resolved]
